FAERS Safety Report 9822635 (Version 1)
Quarter: 2014Q1

REPORT INFORMATION
  Report Type: Spontaneous
  Country: CN (occurrence: CN)
  Receive Date: 20140116
  Receipt Date: 20140116
  Transmission Date: 20141002
  Serious: Yes (Hospitalization, Other)
  Sender: FDA-Public Use
  Company Number: CN-ASTRAZENECA-2014SE01367

PATIENT
  Age: 76 Year
  Sex: Male

DRUGS (5)
  1. BRILINTA [Suspect]
     Indication: ACUTE CORONARY SYNDROME
     Route: 048
     Dates: start: 20131203, end: 20131228
  2. ATORVASTATIN [Interacting]
     Indication: ACUTE CORONARY SYNDROME
     Route: 048
     Dates: start: 20131203
  3. ATORVASTATIN [Interacting]
     Indication: HYPERLIPIDAEMIA
     Route: 048
     Dates: start: 20131203
  4. GASTRIC MUCOSA PROTECTANT [Concomitant]
     Indication: PROPHYLAXIS AGAINST GASTROINTESTINAL ULCER
  5. PPI [Concomitant]
     Indication: PROPHYLAXIS AGAINST GASTROINTESTINAL ULCER

REACTIONS (2)
  - Drug interaction [Unknown]
  - Upper gastrointestinal haemorrhage [Recovering/Resolving]
